FAERS Safety Report 9618946 (Version 1)
Quarter: 2013Q4

REPORT INFORMATION
  Report Type: Spontaneous
  Country: BR (occurrence: BR)
  Receive Date: 20131014
  Receipt Date: 20131014
  Transmission Date: 20140711
  Serious: Yes (Death)
  Sender: FDA-Public Use
  Company Number: BR-PFIZER INC-2013291783

PATIENT
  Age: 91 Year
  Sex: Female

DRUGS (3)
  1. LYRICA [Suspect]
     Indication: PAIN
     Dosage: 75 MG (ONE ^TABLET^), 2X/DAY
     Route: 048
     Dates: start: 20120627
  2. LYRICA [Suspect]
     Indication: DEPRESSION
  3. LYRICA [Suspect]
     Indication: FIBROMYALGIA

REACTIONS (2)
  - Off label use [Fatal]
  - Cardiac arrest [Fatal]
